FAERS Safety Report 5778848-0 (Version None)
Quarter: 2008Q2

REPORT INFORMATION
  Report Type: 
  Country: None (occurrence: None)
  Receive Date: 20080619
  Receipt Date: 20080612
  Transmission Date: 20081010
  Serious: Yes (Other)
  Sender: FDA-Public Use
  Company Number: US-JNJFOC-20080603837

PATIENT
  Sex: Female

DRUGS (2)
  1. EXTRA STRENGTH TYLENOL [Suspect]
     Indication: INSOMNIA
  2. EXTRA STRENGTH TYLENOL [Suspect]
     Indication: MIGRAINE
     Dosage: 5-7, 3 TIMES A DAY

REACTIONS (4)
  - DEPENDENCE [None]
  - FEELING OF RELAXATION [None]
  - INCORRECT DRUG ADMINISTRATION DURATION [None]
  - OVERDOSE [None]
